FAERS Safety Report 24946535 (Version 1)
Quarter: 2025Q1

REPORT INFORMATION
  Report Type: Spontaneous
  Country: IN (occurrence: IN)
  Receive Date: 20250210
  Receipt Date: 20250210
  Transmission Date: 20250408
  Serious: Yes (Hospitalization, Other)
  Sender: NOVARTIS
  Company Number: IN-SANDOZ-SDZ2024IN081984

PATIENT
  Sex: Male

DRUGS (2)
  1. MYFORTIC [Suspect]
     Active Substance: MYCOPHENOLATE SODIUM
     Indication: Renal transplant
     Route: 048
  2. MYFORTIC [Suspect]
     Active Substance: MYCOPHENOLATE SODIUM
     Route: 048

REACTIONS (21)
  - Septic shock [Unknown]
  - Septic encephalopathy [Unknown]
  - Metabolic encephalopathy [Unknown]
  - Sepsis [Unknown]
  - Mitral valve incompetence [Unknown]
  - Ventricular septal defect [Unknown]
  - Decreased appetite [Unknown]
  - Electrolyte imbalance [Unknown]
  - Acute kidney injury [Unknown]
  - Type 2 diabetes mellitus [Unknown]
  - Hypertension [Unknown]
  - Diarrhoea [Unknown]
  - Vomiting [Unknown]
  - Off label use [Unknown]
  - Hypoalbuminaemia [Unknown]
  - Renal function test abnormal [Unknown]
  - Liver function test abnormal [Unknown]
  - Vertigo [Unknown]
  - Hypotension [Unknown]
  - Dehydration [Unknown]
  - Pain in extremity [Unknown]

NARRATIVE: CASE EVENT DATE: 20240101
